FAERS Safety Report 26143801 (Version 1)
Quarter: 2025Q4

REPORT INFORMATION
  Report Type: Other
  Country: EU (occurrence: EU)
  Receive Date: 20251211
  Receipt Date: 20251211
  Transmission Date: 20260118
  Serious: Yes (Hospitalization)
  Sender: Atnahs Healthcare
  Company Number: None

PATIENT

DRUGS (8)
  1. NAPROSYN [Suspect]
     Active Substance: NAPROXEN
     Indication: Product used for unknown indication
     Dosage: 500.0 MG DU
     Route: 048
     Dates: start: 20240429, end: 20240429
  2. Pitavastatina cinfa [Concomitant]
     Indication: Hyperlipidaemia
     Dosage: 1.0 MG C/24 H
     Route: 048
     Dates: start: 20180504
  3. Dutasterida/tamsulosina [Concomitant]
     Indication: Dysuria
     Dosage: 1.0 CAPS DE
     Route: 048
     Dates: start: 20240914
  4. DESFESOTERODINE SUCCINATE [Concomitant]
     Active Substance: DESFESOTERODINE SUCCINATE
     Indication: Dysuria
     Dosage: 3.5 MG DECE
     Route: 048
     Dates: start: 20241004
  5. OMEPRAZOLE [Concomitant]
     Active Substance: OMEPRAZOLE
     Indication: Chronic gastritis
     Dosage: 20.0 MG A-DE
     Route: 048
     Dates: start: 20211015
  6. TERBUTALINE SULFATE [Concomitant]
     Active Substance: TERBUTALINE SULFATE
     Indication: Asthma
     Dosage: 500.0 MCG C/24 H
     Dates: start: 20250411
  7. FOSTER [Concomitant]
     Active Substance: BECLOMETHASONE\FORMOTEROL
     Indication: Asthma
     Dosage: 2.0 PUFF C/12 H
     Dates: start: 20250410
  8. NASONEX [Concomitant]
     Active Substance: MOMETASONE FUROATE
     Indication: Asthma
     Dosage: 100.0 MCG C/24 H
     Route: 045
     Dates: start: 20250411

REACTIONS (2)
  - Bronchospasm [Recovered/Resolved]
  - Self-medication [Recovered/Resolved]

NARRATIVE: CASE EVENT DATE: 20240429
